FAERS Safety Report 8626979 (Version 2)
Quarter: 2012Q4

REPORT INFORMATION
  Report Type: Report from Study
  Country: DE (occurrence: DE)
  Receive Date: 20120620
  Receipt Date: 20120920
  Transmission Date: 20130627
  Serious: Yes (Death, Hospitalization)
  Sender: FDA-Public Use
  Company Number: DE-ROCHE-1077965

PATIENT
  Age: 72 Year
  Sex: Female
  Weight: 58 kg

DRUGS (4)
  1. AVASTIN [Suspect]
     Indication: BREAST CANCER METASTATIC
     Dosage: Last dose prior to SAE: 21/May/2012
     Route: 065
     Dates: start: 20111107
  2. XELODA [Suspect]
     Indication: BREAST CANCER METASTATIC
     Dosage: Last dose prior to SAE: 29/May/2012
     Route: 048
     Dates: start: 20111107
  3. VINORELBINE TARTRATE [Suspect]
     Indication: BREAST CANCER METASTATIC
     Dosage: Last dose prior to SAE: 29/May/2012
     Route: 042
     Dates: start: 20111107
  4. INSULIN [Concomitant]

REACTIONS (2)
  - Sepsis [Fatal]
  - Leukopenia [Fatal]
